FAERS Safety Report 9596779 (Version 1)
Quarter: 2013Q4

REPORT INFORMATION
  Report Type: Spontaneous
  Country: IL (occurrence: IL)
  Receive Date: 20131004
  Receipt Date: 20131004
  Transmission Date: 20140711
  Serious: Yes (Other)
  Sender: FDA-Public Use
  Company Number: PHHY2013IL110647

PATIENT
  Age: 35 Year
  Sex: Female

DRUGS (2)
  1. CERTICAN [Suspect]
     Indication: PROPHYLAXIS AGAINST TRANSPLANT REJECTION
     Dosage: UNK
     Dates: start: 2010
  2. CYCLOSPORIN [Concomitant]
     Dosage: UNK

REACTIONS (3)
  - Arteriosclerosis [Unknown]
  - Coronary artery stenosis [Unknown]
  - Maternal exposure during pregnancy [Unknown]
